FAERS Safety Report 5693124-2 (Version None)
Quarter: 2008Q2

REPORT INFORMATION
  Report Type: 
  Country: None (occurrence: None)
  Receive Date: 20080402
  Receipt Date: 20080402
  Transmission Date: 20081010
  Serious: No
  Sender: FDA-Public Use
  Company Number: None

PATIENT
  Age: 3 Year
  Sex: Male
  Weight: 17.2367 kg

DRUGS (1)
  1. SINGULAIR [Suspect]
     Indication: MULTIPLE ALLERGIES
     Dosage: 1 PACKET 1 TIME A DAY PO
     Route: 048
     Dates: start: 20061213, end: 20080324

REACTIONS (7)
  - ANXIETY [None]
  - DISTURBANCE IN ATTENTION [None]
  - ILL-DEFINED DISORDER [None]
  - MOOD SWINGS [None]
  - SCREAMING [None]
  - SLEEP TERROR [None]
  - SPEECH DISORDER [None]
